FAERS Safety Report 16001389 (Version 1)
Quarter: 2019Q1

REPORT INFORMATION
  Report Type: Spontaneous
  Country: US (occurrence: US)
  Receive Date: 20190224
  Receipt Date: 20190224
  Transmission Date: 20190418
  Serious: No
  Sender: FDA-Public Use
  Company Number: None

PATIENT
  Age: 52 Year
  Sex: Female

DRUGS (1)
  1. ESTRADIOL(V) DIS .0375/24 [Suspect]
     Active Substance: ESTRADIOL
     Indication: HORMONE REPLACEMENT THERAPY
     Dates: start: 20181201, end: 20190224

REACTIONS (3)
  - Hot flush [None]
  - Headache [None]
  - Drug ineffective [None]

NARRATIVE: CASE EVENT DATE: 20190224
